FAERS Safety Report 6639137-5 (Version None)
Quarter: 2010Q1

REPORT INFORMATION
  Report Type: 
  Country: None (occurrence: None)
  Receive Date: 20100312
  Receipt Date: 20100304
  Transmission Date: 20100710
  Serious: Yes (Life-Threatening, Hospitalization)
  Sender: FDA-Public Use
  Company Number: 2010SP006491

PATIENT
  Age: 63 Year
  Sex: Female

DRUGS (4)
  1. NORSET (MIRTAZAPINE /01293201/) [Suspect]
     Indication: DRUG USE FOR UNKNOWN INDICATION
     Dosage: PO
     Route: 048
  2. LEXOMIL (BROMAZEPAM) [Suspect]
     Indication: DRUG USE FOR UNKNOWN INDICATION
     Dosage: PO
     Route: 048
  3. ZOLPIDEM TARTRATE [Suspect]
     Indication: DRUG USE FOR UNKNOWN INDICATION
     Dosage: PO
     Route: 048
  4. MEPRONIZINE (MEPRONIZINE 00789201/) [Suspect]
     Indication: DRUG USE FOR UNKNOWN INDICATION
     Dosage: PO
     Route: 048

REACTIONS (5)
  - COMA [None]
  - HYPOKALAEMIA [None]
  - POISONING DELIBERATE [None]
  - PYREXIA [None]
  - THERAPEUTIC AGENT TOXICITY [None]
